FAERS Safety Report 24677157 (Version 1)
Quarter: 2024Q4

REPORT INFORMATION
  Report Type: Spontaneous
  Country: US (occurrence: US)
  Receive Date: 20241129
  Receipt Date: 20241129
  Transmission Date: 20250115
  Serious: Yes (Hospitalization, Other)
  Sender: KVK-TECH
  Company Number: US-KVK-TECH, INC-20241000160

PATIENT

DRUGS (2)
  1. DEXMETHYLPHENIDATE HYDROCHLORIDE [Suspect]
     Active Substance: DEXMETHYLPHENIDATE HYDROCHLORIDE
     Indication: Product used for unknown indication
     Dosage: 2 DOSAGE FORM, BID
     Route: 048
     Dates: start: 202406, end: 20240704
  2. FOCALIN [Concomitant]
     Active Substance: DEXMETHYLPHENIDATE HYDROCHLORIDE
     Indication: Product used for unknown indication
     Dosage: 20 MILLIGRAM, QD
     Route: 065

REACTIONS (11)
  - Movement disorder [Unknown]
  - Screaming [Unknown]
  - Sedation [Unknown]
  - Hallucinations, mixed [Unknown]
  - Mydriasis [Unknown]
  - Insomnia [Unknown]
  - Crying [Unknown]
  - Product substitution issue [Unknown]
  - Behaviour disorder [Unknown]
  - Mental disorder [Unknown]
  - Product physical issue [Unknown]

NARRATIVE: CASE EVENT DATE: 20240701
